FAERS Safety Report 25573578 (Version 1)
Quarter: 2025Q3

REPORT INFORMATION
  Report Type: Spontaneous
  Country: US (occurrence: US)
  Receive Date: 20250717
  Receipt Date: 20250717
  Transmission Date: 20251020
  Serious: No
  Sender: MYLAN
  Company Number: US-MYLANLABS-2025M1057897

PATIENT
  Sex: Male

DRUGS (4)
  1. NEURONTIN [Suspect]
     Active Substance: GABAPENTIN
     Indication: Product used for unknown indication
     Dosage: 100 MILLIGRAM, BID
     Dates: start: 20250703
  2. NEURONTIN [Suspect]
     Active Substance: GABAPENTIN
     Dosage: 100 MILLIGRAM, BID
     Route: 048
     Dates: start: 20250703
  3. NEURONTIN [Suspect]
     Active Substance: GABAPENTIN
     Dosage: 100 MILLIGRAM, BID
     Route: 048
     Dates: start: 20250703
  4. NEURONTIN [Suspect]
     Active Substance: GABAPENTIN
     Dosage: 100 MILLIGRAM, BID
     Dates: start: 20250703

REACTIONS (1)
  - Off label use [Unknown]
